FAERS Safety Report 12835780 (Version 12)
Quarter: 2017Q4

REPORT INFORMATION
  Report Type: Report from Study
  Country: US (occurrence: US)
  Receive Date: 20161011
  Receipt Date: 20171215
  Transmission Date: 20180320
  Serious: Yes (Hospitalization, Other)
  Sender: FDA-Public Use
  Company Number: US-IPSEN BIOPHARMACEUTICALS, INC.-2016-08247

PATIENT
  Age: 57 Year
  Sex: Female
  Weight: 86.2 kg

DRUGS (40)
  1. SANDOSTATIN [Suspect]
     Active Substance: OCTREOTIDE ACETATE
     Route: 058
     Dates: start: 20140806
  2. NORCO [Concomitant]
     Active Substance: ACETAMINOPHEN\HYDROCODONE BITARTRATE
     Indication: ABDOMINAL PAIN
     Dosage: 20/650 MG, AS NEEDED
     Route: 048
     Dates: start: 20140806, end: 20170519
  3. LASIX [Concomitant]
     Active Substance: FUROSEMIDE
     Route: 042
     Dates: start: 20170309, end: 20170310
  4. ONDASETRON [Concomitant]
     Active Substance: ONDANSETRON
     Indication: NAUSEA
     Route: 048
     Dates: start: 20161216
  5. NICOTINE TRANSDERMAL SYSTEM [Concomitant]
     Active Substance: NICOTINE
     Indication: SMOKING CESSATION THERAPY
     Route: 062
     Dates: start: 20170113
  6. LEVOFLOXACIN. [Concomitant]
     Active Substance: LEVOFLOXACIN
     Indication: OEDEMA
     Route: 048
     Dates: start: 20170413
  7. DUONEB [Concomitant]
     Active Substance: ALBUTEROL SULFATE\IPRATROPIUM BROMIDE
     Dosage: 0.5MG - 3MG (2.5 MG) BASE
  8. SANDOSTATIN [Suspect]
     Active Substance: OCTREOTIDE ACETATE
     Indication: CARCINOID SYNDROME
     Dosage: 1 000 MCG/ML
     Route: 058
     Dates: end: 2017
  9. PULMICORT TURBUHALER [Concomitant]
     Active Substance: BUDESONIDE
     Indication: ASTHMA
     Route: 055
     Dates: start: 20160302, end: 20170113
  10. OXYCODONE ER [Concomitant]
     Active Substance: OXYCODONE
     Indication: ABDOMINAL PAIN
     Route: 048
     Dates: start: 20170519
  11. DULOXETINE. [Concomitant]
     Active Substance: DULOXETINE
  12. COUMADIN [Suspect]
     Active Substance: WARFARIN SODIUM
     Indication: HYPERCOAGULATION
     Route: 048
     Dates: start: 20150104, end: 20170101
  13. CEFTRIAXONE. [Concomitant]
     Active Substance: CEFTRIAXONE
     Indication: OEDEMA
     Route: 042
     Dates: start: 20160804, end: 20160805
  14. CEFTRIAXONE. [Concomitant]
     Active Substance: CEFTRIAXONE
     Indication: CELLULITIS
  15. LEVOFLOXACIN. [Concomitant]
     Active Substance: LEVOFLOXACIN
     Route: 048
     Dates: start: 20170313, end: 20170320
  16. ELAVIL [Concomitant]
     Active Substance: AMITRIPTYLINE HYDROCHLORIDE
  17. SOMATULINE DEPOT [Suspect]
     Active Substance: LANREOTIDE ACETATE
     Indication: NEUROENDOCRINE TUMOUR
     Dosage: 120 MG
     Route: 058
     Dates: start: 20150529
  18. NORCO [Concomitant]
     Active Substance: ACETAMINOPHEN\HYDROCODONE BITARTRATE
     Indication: BACK PAIN
     Dosage: 10/325MG, AS NEEDED
     Route: 048
     Dates: start: 20170519
  19. LASIX [Concomitant]
     Active Substance: FUROSEMIDE
     Indication: OEDEMA
     Route: 048
     Dates: start: 20160414, end: 20160712
  20. LASIX [Concomitant]
     Active Substance: FUROSEMIDE
     Route: 042
     Dates: start: 20170313, end: 20170313
  21. LASIX [Concomitant]
     Active Substance: FUROSEMIDE
     Route: 042
     Dates: start: 20170414, end: 20170414
  22. INSULIN DETEMIR [Concomitant]
     Active Substance: INSULIN DETEMIR
     Indication: TYPE 2 DIABETES MELLITUS
     Dosage: AS DIRECTED/IF BLOOD SUGAR IS MORE THAN 200
     Route: 058
     Dates: start: 20160829
  23. ESOMEPRAZOLE MAGNESIUM. [Concomitant]
     Active Substance: ESOMEPRAZOLE MAGNESIUM
     Indication: PROPHYLAXIS
     Route: 048
     Dates: start: 20170210
  24. POTASSIUM CHLORIDE. [Concomitant]
     Active Substance: POTASSIUM CHLORIDE
     Indication: SUPPLEMENTATION THERAPY
     Route: 048
     Dates: start: 2015, end: 20170519
  25. FLONASE [Concomitant]
     Active Substance: FLUTICASONE PROPIONATE
     Indication: RHINITIS ALLERGIC
     Route: 045
     Dates: start: 2011
  26. LASIX [Concomitant]
     Active Substance: FUROSEMIDE
     Route: 042
     Dates: start: 20160803, end: 20160806
  27. LASIX [Concomitant]
     Active Substance: FUROSEMIDE
     Route: 042
     Dates: start: 20170113, end: 20170113
  28. LISINOPRIL. [Concomitant]
     Active Substance: LISINOPRIL
     Indication: HYPERTENSION
     Route: 048
     Dates: start: 2011, end: 20161104
  29. ALBUTEROL. [Concomitant]
     Active Substance: ALBUTEROL
     Indication: ASTHMA
     Route: 055
     Dates: start: 2005
  30. OXYCODONE ER [Concomitant]
     Active Substance: OXYCODONE
     Indication: BACK PAIN
     Route: 048
     Dates: start: 20170210, end: 20170519
  31. SANDOSTATIN [Suspect]
     Active Substance: OCTREOTIDE ACETATE
     Indication: DIARRHOEA
     Dosage: 200 MCG/ML
     Route: 058
     Dates: end: 2017
  32. LASIX [Concomitant]
     Active Substance: FUROSEMIDE
     Route: 042
     Dates: start: 20160705, end: 20160705
  33. PROMETHAZINE [Concomitant]
     Active Substance: PROMETHAZINE\PROMETHAZINE HYDROCHLORIDE
     Indication: NAUSEA
     Route: 048
     Dates: start: 20150226, end: 20170113
  34. SYMBICORT [Concomitant]
     Active Substance: BUDESONIDE\FORMOTEROL FUMARATE DIHYDRATE
     Indication: CHRONIC OBSTRUCTIVE PULMONARY DISEASE
     Dosage: 80/4.5 MCG (TWO PUFFS)
     Route: 055
     Dates: start: 2014
  35. SPIRONOLACTONE. [Concomitant]
     Active Substance: SPIRONOLACTONE
     Indication: OEDEMA
     Route: 048
     Dates: start: 20170215
  36. ATIVAN [Suspect]
     Active Substance: LORAZEPAM
     Indication: ANXIETY
     Route: 048
     Dates: start: 2000
  37. LASIX [Concomitant]
     Active Substance: FUROSEMIDE
     Route: 042
     Dates: start: 20170301, end: 20170302
  38. LASIX [Concomitant]
     Active Substance: FUROSEMIDE
     Route: 048
     Dates: start: 20170519
  39. LEVOFLOXACIN. [Concomitant]
     Active Substance: LEVOFLOXACIN
     Indication: CELLULITIS
     Route: 048
     Dates: start: 20170313, end: 20170320
  40. LASIX [Concomitant]
     Active Substance: FUROSEMIDE
     Route: 048
     Dates: start: 20160613

REACTIONS (32)
  - Syncope [Recovered/Resolved]
  - Ascites [Unknown]
  - Lethargy [Recovering/Resolving]
  - Condition aggravated [Unknown]
  - Injection site granuloma [Unknown]
  - Blood glucose increased [Unknown]
  - Pleural effusion [Unknown]
  - Atelectasis [Unknown]
  - Mental disorder [Recovered/Resolved]
  - Spinal osteoarthritis [Unknown]
  - Disease progression [Unknown]
  - Lymphadenopathy [Unknown]
  - Drug abuse [Unknown]
  - Syncope [Recovered/Resolved]
  - Pelvic mass [Unknown]
  - Confusional state [Recovering/Resolving]
  - Depression [Not Recovered/Not Resolved]
  - Sinus tachycardia [Unknown]
  - Osteopenia [Unknown]
  - Hepatic cirrhosis [Unknown]
  - Cellulitis [Recovered/Resolved]
  - Renal cyst [Unknown]
  - Ecchymosis [Unknown]
  - Splenic infarction [Unknown]
  - Intervertebral disc protrusion [Unknown]
  - Lung infection [Recovered/Resolved]
  - Fall [Recovering/Resolving]
  - Drug effect incomplete [Unknown]
  - Splenic lesion [Unknown]
  - Inferior vena cava stenosis [Unknown]
  - Hallucination [Recovering/Resolving]
  - Constipation [Unknown]

NARRATIVE: CASE EVENT DATE: 2015
